FAERS Safety Report 8575390-9 (Version None)
Quarter: 2012Q3

REPORT INFORMATION
  Report Type: 
  Country: None (occurrence: None)
  Receive Date: 20120807
  Receipt Date: 20120807
  Transmission Date: 20120928
  Serious: No
  Sender: FDA-Public Use
  Company Number: US-PFIZER INC-2012182726

PATIENT
  Sex: Male

DRUGS (3)
  1. LYRICA [Suspect]
     Indication: HEADACHE
  2. LYRICA [Suspect]
     Indication: NERVE INJURY
  3. LYRICA [Suspect]
     Indication: NECK PAIN

REACTIONS (1)
  - DRUG EFFECT DECREASED [None]
